FAERS Safety Report 20208849 (Version 2)
Quarter: 2022Q1

REPORT INFORMATION
  Report Type: Spontaneous
  Country: GB (occurrence: GB)
  Receive Date: 20211220
  Receipt Date: 20220311
  Transmission Date: 20220424
  Serious: No
  Sender: FDA-Public Use
  Company Number: GB-PFIZER INC-202100922118

PATIENT
  Age: 46 Year
  Sex: Female

DRUGS (1)
  1. GENOTROPIN [Suspect]
     Active Substance: SOMATROPIN
     Indication: Growth hormone deficiency
     Dosage: 0.3 MG, DAILY
     Route: 058
     Dates: start: 2017

REACTIONS (1)
  - Device breakage [Unknown]
